FAERS Safety Report 20561165 (Version 3)
Quarter: 2022Q2

REPORT INFORMATION
  Report Type: Report from Study
  Country: PS (occurrence: None)
  Receive Date: 20220307
  Receipt Date: 20220406
  Transmission Date: 20220721
  Serious: Yes (Hospitalization)
  Sender: FDA-Public Use
  Company Number: PS-Merck Healthcare KGaA-9303316

PATIENT
  Age: 25 Year
  Sex: Female

DRUGS (3)
  1. MAVENCLAD [Suspect]
     Active Substance: CLADRIBINE
     Indication: Multiple sclerosis
     Dosage: YEAR ONE MONTH ONE THERAPY
     Dates: start: 20201210, end: 20201214
  2. MAVENCLAD [Suspect]
     Active Substance: CLADRIBINE
     Dosage: YEAR ONE MONTH TWO THERAPY
     Dates: start: 20210110, end: 20210114
  3. FOLIC ACID [Concomitant]
     Active Substance: FOLIC ACID
     Indication: Product used for unknown indication
     Dosage: DURING PREGNANCY
     Dates: start: 2021

REACTIONS (8)
  - Abortion missed [Unknown]
  - Impetigo [Unknown]
  - Urinary tract infection [Recovered/Resolved]
  - Feeding disorder [Unknown]
  - Fluid intake reduced [Unknown]
  - Depressed mood [Unknown]
  - Crying [Unknown]
  - Maternal exposure before pregnancy [Recovered/Resolved]

NARRATIVE: CASE EVENT DATE: 20210101
